FAERS Safety Report 14460723 (Version 1)
Quarter: 2018Q1

REPORT INFORMATION
  Report Type: Spontaneous
  Country: TR (occurrence: TR)
  Receive Date: 20180130
  Receipt Date: 20180130
  Transmission Date: 20180509
  Serious: Yes (Other)
  Sender: FDA-Public Use
  Company Number: TR-BAUSCH-BL-2018-001589

PATIENT
  Age: 5 Month
  Sex: Female

DRUGS (1)
  1. CLOBETASOL PROPIONATE. [Suspect]
     Active Substance: CLOBETASOL PROPIONATE
     Indication: DERMATITIS DIAPER
     Route: 061

REACTIONS (6)
  - Cushing^s syndrome [Recovered/Resolved]
  - Hepatic steatosis [Unknown]
  - Cerebral atrophy [Recovering/Resolving]
  - Delayed myelination [Unknown]
  - Prescription drug used without a prescription [Unknown]
  - Intentional product misuse [Unknown]
